FAERS Safety Report 15707409 (Version 2)
Quarter: 2020Q3

REPORT INFORMATION
  Report Type: Report from Study
  Country: None (occurrence: HU)
  Receive Date: 20181211
  Receipt Date: 20200810
  Transmission Date: 20201102
  Serious: Yes (Other)
  Sender: FDA-Public Use
  Company Number: HU-ABBVIE-18S-076-2584662-00

PATIENT
  Age: 80 Year
  Sex: Male

DRUGS (10)
  1. CITAGEN [Concomitant]
     Indication: AFFECTIVE DISORDER
     Route: 048
  2. DUODOPA [Suspect]
     Active Substance: CARBIDOPA\LEVODOPA
     Dosage: MD 11.0 ML; CD 2.5 ML/H; ED 1.5 ML
     Route: 050
     Dates: start: 20170505
  3. STALEVO [Concomitant]
     Active Substance: CARBIDOPA\ENTACAPONE\LEVODOPA
     Indication: PARKINSON^S DISEASE
     Dosage: 1 TABLET AT NIGHT
     Route: 048
     Dates: start: 2007
  4. MADOPAR [Concomitant]
     Active Substance: BENSERAZIDE HYDROCHLORIDE\LEVODOPA
     Indication: PARKINSON^S DISEASE
     Dosage: 1 TABLET AT NIGHT AS REQUIRED
     Route: 048
     Dates: start: 2007
  5. DUODOPA [Suspect]
     Active Substance: CARBIDOPA\LEVODOPA
     Indication: PARKINSON^S DISEASE
     Route: 050
     Dates: start: 20150508
  6. REQUIP [Concomitant]
     Active Substance: ROPINIROLE HYDROCHLORIDE
     Indication: PARKINSON^S DISEASE
     Dosage: 8MG, 4MG, 2X8MG AND 1 TABLET IN THE EVENING
     Route: 048
     Dates: start: 2012
  7. ELIGARD [Concomitant]
     Active Substance: LEUPROLIDE ACETATE
     Indication: PROSTATE CANCER
     Route: 030
     Dates: start: 201606
  8. SOMNOL [Concomitant]
     Active Substance: APOMORPHINE HYDROCHLORIDE\HEXOBARBITAL\NIACIN\PHENOBARBITAL\SCOPOLAMINE HYDROBROMIDE
     Indication: SLEEP DISORDER
     Dosage: 1 TABLET IN THE EVENING
     Route: 048
     Dates: start: 201612
  9. VITAMIN B12 [Concomitant]
     Active Substance: CYANOCOBALAMIN
     Indication: PRODUCT USED FOR UNKNOWN INDICATION
  10. TANYZ ERAS [Concomitant]
     Indication: PROSTATE CANCER
     Route: 048
     Dates: start: 201603

REACTIONS (4)
  - Loss of consciousness [Not Recovered/Not Resolved]
  - Vertigo [Not Recovered/Not Resolved]
  - Mental impairment [Not Recovered/Not Resolved]
  - Orthostatic hypotension [Not Recovered/Not Resolved]

NARRATIVE: CASE EVENT DATE: 201811
